FAERS Safety Report 19377824 (Version 1)
Quarter: 2021Q2

REPORT INFORMATION
  Report Type: Spontaneous
  Country: AR (occurrence: AR)
  Receive Date: 20210604
  Receipt Date: 20210604
  Transmission Date: 20210717
  Serious: Yes (Hospitalization, Other)
  Sender: FDA-Public Use
  Company Number: AR-PFIZER INC-2021593176

PATIENT
  Age: 47 Year
  Sex: Female

DRUGS (1)
  1. AROMASIN [Suspect]
     Active Substance: EXEMESTANE
     Indication: BREAST CANCER METASTATIC
     Dosage: 25 MG
     Dates: start: 20201221

REACTIONS (7)
  - Pain [Unknown]
  - Cough [Unknown]
  - Lung disorder [Unknown]
  - Neoplasm progression [Unknown]
  - Pneumonia [Unknown]
  - Agitation [Unknown]
  - Back pain [Unknown]

NARRATIVE: CASE EVENT DATE: 202103
